FAERS Safety Report 4674153-4 (Version None)
Quarter: 2005Q2

REPORT INFORMATION
  Report Type: 
  Country: None (occurrence: None)
  Receive Date: 20050524
  Receipt Date: 20050513
  Transmission Date: 20051028
  Serious: Yes (Hospitalization, Other)
  Sender: FDA-Public Use
  Company Number: KII-2005-0016647

PATIENT
  Age: 30 Year
  Sex: Male

DRUGS (8)
  1. HYDROMORPHONE HCL [Suspect]
     Dosage: ORAL
     Route: 048
  2. METHADONE HCL [Suspect]
     Dosage: ORAL
     Route: 048
  3. GABAPENTIN [Suspect]
     Dosage: ORAL
     Route: 048
  4. AMITRIPTYLINE HCL [Suspect]
     Dosage: ORAL
     Route: 048
  5. BACLOFEN [Suspect]
     Dosage: ORAL
     Route: 048
  6. BENZODIAZEPINE DERIVATIVES () [Suspect]
     Dosage: ORAL
     Route: 048
  7. ANTIEPILEPTICS() [Suspect]
     Dosage: ORAL
     Route: 048
  8. WARFARIN SODIUM [Suspect]
     Dosage: ORAL
     Route: 048

REACTIONS (7)
  - AGITATION [None]
  - BOWEL SOUNDS ABNORMAL [None]
  - COMA [None]
  - DISORIENTATION [None]
  - HYPOTENSION [None]
  - MYDRIASIS [None]
  - TACHYCARDIA [None]
